FAERS Safety Report 7245866-5 (Version None)
Quarter: 2011Q1

REPORT INFORMATION
  Report Type: 
  Country: None (occurrence: None)
  Receive Date: 20110126
  Receipt Date: 20110117
  Transmission Date: 20110831
  Serious: Yes (Death, Other)
  Sender: FDA-Public Use
  Company Number: US-CEPHALON-2011000258

PATIENT
  Sex: Female

DRUGS (4)
  1. MIRTAZAPINE [Suspect]
  2. CYCLOBENZAPRINE HCL [Suspect]
  3. TOPIRAMATE [Suspect]
  4. OVER THE COUNTER ALLERGY MEDICATION [Concomitant]

REACTIONS (2)
  - DEATH [None]
  - OVERDOSE [None]
